FAERS Safety Report 6860455-X (Version None)
Quarter: 2010Q3

REPORT INFORMATION
  Report Type: 
  Country: None (occurrence: None)
  Receive Date: 20100715
  Receipt Date: 20100630
  Transmission Date: 20110219
  Serious: Yes (Hospitalization)
  Sender: FDA-Public Use
  Company Number: A-NJ2010-37767

PATIENT
  Age: 71 Year
  Sex: Male

DRUGS (1)
  1. TRACLEER [Suspect]
     Indication: PULMONARY ARTERIAL HYPERTENSION
     Dosage: ORAL
     Route: 048
     Dates: start: 20091013

REACTIONS (4)
  - ASTHENIA [None]
  - DYSPNOEA [None]
  - HYPERGLYCAEMIA [None]
  - HYPOTENSION [None]
